FAERS Safety Report 8923512 (Version 2)
Quarter: 2012Q4

REPORT INFORMATION
  Report Type: 
  Country: US (occurrence: US)
  Receive Date: 20121123
  Receipt Date: 20121221
  Transmission Date: 20130627
  Serious: No
  Sender: FDA-Public Use
  Company Number: US-PFIZER INC-2012290514

PATIENT
  Age: 74 Year
  Sex: Male
  Weight: 90.7 kg

DRUGS (5)
  1. DEPO-TESTOSTERONE [Suspect]
     Indication: TESTOSTERONE LOW
     Dosage: 0.15 ml, two times a week
     Route: 030
     Dates: start: 20121015
  2. DEPO-TESTOSTERONE [Suspect]
  3. DEPO-TESTOSTERONE [Suspect]
     Dosage: UNK
  4. LISINOPRIL [Concomitant]
     Dosage: UNK
  5. HYDROCHLOROTHIAZIDE [Concomitant]
     Dosage: UNK

REACTIONS (4)
  - Injection site mass [Not Recovered/Not Resolved]
  - Injection site swelling [Unknown]
  - Injection site pain [Unknown]
  - Oedema [Unknown]
